FAERS Safety Report 9738938 (Version 1)
Quarter: 2013Q4

REPORT INFORMATION
  Report Type: Spontaneous
  Country: US (occurrence: US)
  Receive Date: 20131209
  Receipt Date: 20131209
  Transmission Date: 20140711
  Serious: Yes (Hospitalization)
  Sender: FDA-Public Use
  Company Number: US-JNJFOC-20131116001

PATIENT
  Age: 68 Year
  Sex: Male

DRUGS (3)
  1. PARACETAMOL [Suspect]
     Route: 065
  2. PARACETAMOL [Suspect]
     Indication: OSTEOARTHRITIS
     Route: 065
  3. LISINOPRIL [Concomitant]
     Indication: HYPERTENSION
     Route: 065

REACTIONS (1)
  - Acidosis [Unknown]
